FAERS Safety Report 8139711-3 (Version None)
Quarter: 2012Q1

REPORT INFORMATION
  Report Type: 
  Country: None (occurrence: None)
  Receive Date: 20120215
  Receipt Date: 20120210
  Transmission Date: 20120608
  Serious: Yes (Hospitalization)
  Sender: FDA-Public Use
  Company Number: PHEH2012US003556

PATIENT
  Sex: Female

DRUGS (12)
  1. ALBUTEROL [Concomitant]
     Dosage: UNK
  2. SERTRALINE HYDROCHLORIDE [Concomitant]
     Dosage: UNK
  3. METOPROLOL TARTRATE [Concomitant]
     Dosage: UNK
  4. PRAVASTATIN [Concomitant]
     Dosage: UNK
  5. MUCINEX [Concomitant]
     Dosage: UNK
  6. ACETYLSALICYLIC ACID SRT [Concomitant]
     Dosage: UNK
  7. FLONASE [Concomitant]
     Dosage: UNK
  8. CLONIDINE [Concomitant]
     Dosage: 0.3 MG, BID
  9. DIOVAN HCT [Suspect]
     Dosage: 320/25MG, QD
  10. SPIRONOLACTONE [Concomitant]
     Dosage: 25 MG, UNK
  11. ALLEGRA [Concomitant]
     Dosage: UNK
  12. ADALAT [Concomitant]
     Dosage: 90 MG, QD

REACTIONS (1)
  - MALAISE [None]
